FAERS Safety Report 13679387 (Version 1)
Quarter: 2017Q2

REPORT INFORMATION
  Report Type: Spontaneous
  Country: US (occurrence: US)
  Receive Date: 20170622
  Receipt Date: 20170622
  Transmission Date: 20170830
  Serious: No
  Sender: FDA-Public Use
  Company Number: US-EMD SERONO-8163503

PATIENT
  Sex: Female

DRUGS (1)
  1. REBIF [Suspect]
     Active Substance: INTERFERON BETA-1A
     Indication: PRODUCT USED FOR UNKNOWN INDICATION
     Route: 058

REACTIONS (6)
  - Nuclear magnetic resonance imaging abnormal [Unknown]
  - Injection site pain [Unknown]
  - Treatment failure [Unknown]
  - Injection site erythema [Unknown]
  - Disease progression [Unknown]
  - Injection site induration [Unknown]
